FAERS Safety Report 7837715 (Version 2)
Quarter: 2013Q1

REPORT INFORMATION
  Report Type: Spontaneous
  Country: US (occurrence: US)
  Receive Date: 20110302
  Receipt Date: 20130103
  Transmission Date: 20140127
  Serious: Yes (Hospitalization, Other)
  Sender: FDA-Public Use
  Company Number: US-PFIZER INC-2010007250

PATIENT
  Age: 37 Year
  Sex: Male

DRUGS (7)
  1. DILANTIN [Suspect]
     Indication: CONVULSION
     Dosage: 1000MG (20 ML) AT THE RATE OF 300 ML/HR
     Route: 042
     Dates: start: 20080521
  2. DILANTIN [Suspect]
     Dosage: 500 MG AT THE RATE OF 300 ML/HR
     Route: 042
     Dates: start: 20080524
  3. DILANTIN [Suspect]
     Dosage: 300 MG (6ML) AT A MAXIMUM RATE OF 50 MG/MIN, 2X/DAY
     Route: 042
     Dates: start: 20080527, end: 20080528
  4. DILANTIN [Suspect]
     Dosage: 200 MG, (MAX 25 MG/MIN PER ORDER)
     Dates: start: 20080531, end: 20080627
  5. DILANTIN [Suspect]
     Indication: CONVULSION
     Dosage: 100 MG, 3X/DAY
     Route: 048
     Dates: start: 20080522, end: 20080523
  6. DILANTIN [Suspect]
     Dosage: 200 MG, 2X/DAY
     Route: 048
     Dates: start: 20080523
  7. DILANTIN [Suspect]
     Dosage: 300 MG, 2X/DAY
     Route: 048
     Dates: start: 20080525, end: 20080627

REACTIONS (1)
  - Stevens-Johnson syndrome [Recovered/Resolved]
